FAERS Safety Report 5268847-X (Version None)
Quarter: 2007Q1

REPORT INFORMATION
  Report Type: 
  Country: None (occurrence: None)
  Receive Date: 20061213
  Receipt Date: 20031029
  Transmission Date: 20070707
  Serious: Yes (Other)
  Sender: FDA-Public Use
  Company Number: 2003UW14284

PATIENT
  Age: 59 Year
  Sex: Female
  Weight: 53.0709 kg

DRUGS (6)
  1. IRESSA [Suspect]
     Dosage: 250 MG DAILY PO
     Route: 048
     Dates: start: 20031001
  2. TRAZODONE HCL [Concomitant]
  3. MORPHINE [Concomitant]
  4. VIOXX [Concomitant]
  5. VICODIN [Concomitant]
  6. LIDOCAINE [Concomitant]

REACTIONS (3)
  - DECREASED APPETITE [None]
  - HYPERTENSION [None]
  - WEIGHT DECREASED [None]
